FAERS Safety Report 20188753 (Version 1)
Quarter: 2021Q4

REPORT INFORMATION
  Report Type: Spontaneous
  Country: US (occurrence: None)
  Receive Date: 20211215
  Receipt Date: 20211215
  Transmission Date: 20220303
  Serious: No
  Sender: FDA-Public Use
  Company Number: 2021A808544

PATIENT
  Sex: Male
  Weight: 61.7 kg

DRUGS (1)
  1. BUDESONIDE\FORMOTEROL\GLYCOPYRRONIUM [Suspect]
     Active Substance: BUDESONIDE\FORMOTEROL\GLYCOPYRRONIUM
     Dosage: 2 PUFFS, BID
     Route: 055
     Dates: start: 2021

REACTIONS (5)
  - Back pain [Recovering/Resolving]
  - Dyspnoea [Recovering/Resolving]
  - Musculoskeletal discomfort [Recovering/Resolving]
  - Chest pain [Recovering/Resolving]
  - Device malfunction [Unknown]
